FAERS Safety Report 19485070 (Version 6)
Quarter: 2021Q3

REPORT INFORMATION
  Report Type: Spontaneous
  Country: JP (occurrence: JP)
  Receive Date: 20210701
  Receipt Date: 20210907
  Transmission Date: 20211014
  Serious: Yes (Hospitalization, Other)
  Sender: FDA-Public Use
  Company Number: JP-SA-2021SA215058

PATIENT
  Age: 63 Year
  Sex: Female
  Weight: 52.1 kg

DRUGS (7)
  1. SINGULAIR [Concomitant]
     Active Substance: MONTELUKAST SODIUM
     Indication: CHRONIC RHINOSINUSITIS WITH NASAL POLYPS
     Dosage: 10 MG, QD
     Route: 048
     Dates: start: 20210506
  2. GENINAX [Concomitant]
     Active Substance: GARENOXACIN MESYLATE
     Indication: PRODUCT USED FOR UNKNOWN INDICATION
     Dosage: 2 DF, QD
     Route: 065
     Dates: start: 20210617, end: 20210623
  3. GENINAX [Concomitant]
     Active Substance: GARENOXACIN MESYLATE
     Dosage: 2 DF, QD
     Route: 065
     Dates: start: 20210506, end: 20210512
  4. DUPIXENT [Suspect]
     Active Substance: DUPILUMAB
     Indication: CHRONIC RHINOSINUSITIS WITH NASAL POLYPS
     Dosage: 300 MG, QOW
     Route: 058
     Dates: start: 20210407, end: 20210630
  5. MUCODYNE [Concomitant]
     Active Substance: CARBOCYSTEINE
     Indication: CHRONIC RHINOSINUSITIS WITH NASAL POLYPS
     Dosage: 500 MG, TID
     Route: 048
     Dates: start: 20210513, end: 20210713
  6. RINDERON [BETAMETHASONE SODIUM PHOSPHATE] [Concomitant]
     Active Substance: BETAMETHASONE SODIUM PHOSPHATE
     Indication: CHRONIC RHINOSINUSITIS WITH NASAL POLYPS
     Dosage: 0.1 %, BID
     Route: 045
     Dates: start: 20210506
  7. CLARITH [Concomitant]
     Active Substance: CLARITHROMYCIN
     Indication: CHRONIC RHINOSINUSITIS WITH NASAL POLYPS
     Dosage: 200 MG, QD
     Route: 048
     Dates: start: 20210513, end: 20210713

REACTIONS (8)
  - Cough [Recovering/Resolving]
  - Pyrexia [Recovering/Resolving]
  - Hypoacusis [Recovering/Resolving]
  - Eosinophilic granulomatosis with polyangiitis [Recovering/Resolving]
  - Ear pain [Recovering/Resolving]
  - Arthralgia [Recovering/Resolving]
  - Condition aggravated [Recovering/Resolving]
  - Headache [Recovering/Resolving]

NARRATIVE: CASE EVENT DATE: 2021
